FAERS Safety Report 21876106 (Version 7)
Quarter: 2023Q2

REPORT INFORMATION
  Report Type: Report from Study
  Country: CN (occurrence: CN)
  Receive Date: 20230118
  Receipt Date: 20230606
  Transmission Date: 20230721
  Serious: Yes (Hospitalization)
  Sender: FDA-Public Use
  Company Number: CN-002147023-NVSC2023CN008729

PATIENT
  Age: 39 Year
  Sex: Male
  Weight: 63 kg

DRUGS (7)
  1. GLEEVEC [Suspect]
     Active Substance: IMATINIB MESYLATE
     Indication: Chronic myeloid leukaemia
     Dosage: 400 MG, QD
     Route: 048
     Dates: start: 20220318, end: 20230109
  2. LANSOPRAZOLE [Concomitant]
     Active Substance: LANSOPRAZOLE
     Indication: Lipase increased
     Dosage: ENTERIC-COATED
     Route: 065
     Dates: start: 20220518
  3. PANCREATIN [Concomitant]
     Active Substance: PANCRELIPASE
     Indication: Lipase increased
     Dosage: ENTERIC-COATED
     Route: 065
     Dates: start: 20220518
  4. GRANULOCYTE COLONY-STIMULATING FACTOR NOS [Concomitant]
     Active Substance: GRANULOCYTE COLONY-STIMULATING FACTOR NOS
     Indication: Leukopenia
     Dosage: UNK
     Route: 065
     Dates: start: 20221227, end: 20221229
  5. GRANULOCYTE COLONY-STIMULATING FACTOR NOS [Concomitant]
     Active Substance: GRANULOCYTE COLONY-STIMULATING FACTOR NOS
     Indication: Neutropenia
     Dosage: UNK
     Route: 065
     Dates: start: 20230112, end: 20230118
  6. POTASSIUM CHLORIDE [Concomitant]
     Active Substance: POTASSIUM CHLORIDE
     Indication: Hypokalaemia
     Dosage: INJECTION
     Route: 065
     Dates: start: 20230112, end: 20230112
  7. POTASSIUM CHLORIDE [Concomitant]
     Active Substance: POTASSIUM CHLORIDE
     Dosage: SUSTAINED-RELEASE TABLET
     Route: 065
     Dates: start: 20230112, end: 20230117

REACTIONS (1)
  - Pneumonia [Not Recovered/Not Resolved]

NARRATIVE: CASE EVENT DATE: 20230112
